FAERS Safety Report 24906163 (Version 1)
Quarter: 2025Q1

REPORT INFORMATION
  Report Type: Spontaneous
  Country: JP (occurrence: JP)
  Receive Date: 20250130
  Receipt Date: 20250130
  Transmission Date: 20250408
  Serious: Yes (Other)
  Sender: JUBILANT
  Company Number: None

PATIENT
  Age: 48 Year
  Sex: Male

DRUGS (14)
  1. RISPERIDONE [Interacting]
     Active Substance: RISPERIDONE
     Indication: Hallucination, auditory
     Route: 065
  2. RISPERIDONE [Interacting]
     Active Substance: RISPERIDONE
     Indication: Delusion
     Route: 065
  3. RISPERIDONE [Interacting]
     Active Substance: RISPERIDONE
     Indication: Psychomotor hyperactivity
     Route: 065
  4. RISPERIDONE [Interacting]
     Active Substance: RISPERIDONE
     Indication: Verbal abuse
     Route: 065
  5. RISPERIDONE [Interacting]
     Active Substance: RISPERIDONE
     Indication: Suicidal ideation
  6. RISPERIDONE [Interacting]
     Active Substance: RISPERIDONE
     Indication: Epileptic psychosis
  7. PALIPERIDONE [Interacting]
     Active Substance: PALIPERIDONE
     Indication: Hallucination, auditory
     Route: 048
  8. PALIPERIDONE [Interacting]
     Active Substance: PALIPERIDONE
     Indication: Delusion
     Route: 048
  9. PALIPERIDONE [Interacting]
     Active Substance: PALIPERIDONE
     Indication: Psychomotor hyperactivity
  10. PALIPERIDONE [Interacting]
     Active Substance: PALIPERIDONE
     Indication: Verbal abuse
  11. PALIPERIDONE [Interacting]
     Active Substance: PALIPERIDONE
     Indication: Suicidal ideation
  12. PALIPERIDONE [Interacting]
     Active Substance: PALIPERIDONE
     Indication: Epileptic psychosis
  13. VALPROATE [Interacting]
     Active Substance: VALPROIC ACID
     Indication: Generalised tonic-clonic seizure
     Route: 065
  14. EMPAGLIFLOZIN [Concomitant]
     Active Substance: EMPAGLIFLOZIN
     Indication: Diabetes mellitus
     Dosage: 10 MG, ONCE PER DAY

REACTIONS (5)
  - Neuroleptic malignant syndrome [Recovered/Resolved]
  - Drug interaction [Recovered/Resolved]
  - Drug interaction [Recovered/Resolved]
  - Muscle rigidity [Recovered/Resolved]
  - Sedation complication [Recovered/Resolved]
